FAERS Safety Report 8337438-6 (Version None)
Quarter: 2012Q2

REPORT INFORMATION
  Report Type: 
  Country: None (occurrence: None)
  Receive Date: 20120504
  Receipt Date: 20120420
  Transmission Date: 20120825
  Serious: Yes (Hospitalization)
  Sender: FDA-Public Use
  Company Number: FR-ROCHE-1055853

PATIENT
  Sex: Female
  Weight: 42 kg

DRUGS (10)
  1. COPEGUS [Suspect]
     Indication: HEPATITIS C
     Dosage: DAILY
     Route: 048
     Dates: start: 20120125
  2. TMC435 (NS3/4A PROTEASE INHIBITOR) [Suspect]
     Indication: HEPATITIS C
     Dosage: QD
     Route: 048
     Dates: start: 20120125
  3. RALOXIFENE [Concomitant]
     Indication: OSTEOPOROSIS
     Route: 048
  4. AMLODIPINE BESYLATE [Concomitant]
     Indication: ANGINA PECTORIS
     Route: 048
  5. BETAMETHASONE [Concomitant]
     Dosage: 1
     Route: 061
     Dates: start: 20120206
  6. NEXIUM [Concomitant]
     Indication: GASTROOESOPHAGEAL REFLUX DISEASE
     Route: 048
  7. VALSARTAN [Concomitant]
     Indication: HYPERTENSION
     Route: 048
  8. ASPIRIN [Concomitant]
     Route: 048
  9. PEGASYS [Suspect]
     Indication: HEPATITIS C
     Route: 058
     Dates: start: 20120125
  10. NITROGLYCERIN [Concomitant]
     Indication: ANGINA PECTORIS
     Dosage: ONCE DAILY, INHALATION

REACTIONS (1)
  - GENERAL PHYSICAL HEALTH DETERIORATION [None]
